FAERS Safety Report 15678219 (Version 1)
Quarter: 2018Q4

REPORT INFORMATION
  Report Type: Spontaneous
  Country: US (occurrence: US)
  Receive Date: 20181201
  Receipt Date: 20181201
  Transmission Date: 20190205
  Serious: No
  Sender: FDA-Public Use
  Company Number: US-ASTRAZENECA-2018SF48673

PATIENT
  Sex: Female
  Weight: 81.6 kg

DRUGS (6)
  1. AMLODIPINE [Concomitant]
     Active Substance: AMLODIPINE BESYLATE
     Indication: BLOOD PRESSURE MEASUREMENT
     Dosage: 2.5MG UNKNOWN
     Route: 048
  2. QUINAPRIL. [Concomitant]
     Active Substance: QUINAPRIL
     Indication: BLOOD PRESSURE MEASUREMENT
     Dosage: 40.0MG UNKNOWN
     Route: 048
  3. HYDROCHLOROTHIAZIDE. [Concomitant]
     Active Substance: HYDROCHLOROTHIAZIDE
     Indication: BLOOD PRESSURE MEASUREMENT
     Dosage: 25.0MG UNKNOWN
     Route: 048
  4. SYMBICORT [Suspect]
     Active Substance: BUDESONIDE\FORMOTEROL FUMARATE DIHYDRATE
     Indication: ASTHMA
     Dosage: 80/4.5MCG 2 PUFFS TWICE A DAY
     Route: 055
     Dates: start: 2013
  5. VISKEN [Concomitant]
     Active Substance: PINDOLOL
     Indication: BLOOD PRESSURE MEASUREMENT
     Route: 048
  6. LEVOTHYROXINE. [Concomitant]
     Active Substance: LEVOTHYROXINE
     Indication: THYROID CANCER
     Dosage: 75.0UG UNKNOWN
     Route: 048

REACTIONS (3)
  - Visual impairment [Unknown]
  - Thyroid disorder [Unknown]
  - Vision blurred [Unknown]
